FAERS Safety Report 4398114-8 (Version None)
Quarter: 2004Q3

REPORT INFORMATION
  Report Type: 
  Country: None (occurrence: None)
  Receive Date: 20040713
  Receipt Date: 20040625
  Transmission Date: 20050211
  Serious: Yes (Hospitalization)
  Sender: FDA-Public Use
  Company Number: DSA_24531_2004

PATIENT
  Age: 32 Year
  Sex: Female

DRUGS (4)
  1. LORAZEPAM [Suspect]
     Dosage: 50 MG ONCE PO
     Route: 048
     Dates: start: 20040605, end: 20040605
  2. ATOSIL [Suspect]
     Dosage: 1000 MG ONCE
     Dates: start: 20040605, end: 20040605
  3. GEODON [Suspect]
     Dosage: 240 MG ONCE PO
     Route: 048
     Dates: start: 20040605, end: 20040605
  4. MELPERONE [Suspect]
     Dosage: 100 MG ONCE PO
     Route: 048
     Dates: start: 20040605, end: 20040605

REACTIONS (9)
  - AGITATION [None]
  - BLOOD CREATINE PHOSPHOKINASE INCREASED [None]
  - BLOOD LACTATE DEHYDROGENASE INCREASED [None]
  - C-REACTIVE PROTEIN INCREASED [None]
  - DISORIENTATION [None]
  - MULTIPLE DRUG OVERDOSE INTENTIONAL [None]
  - SOMNOLENCE [None]
  - SUICIDE ATTEMPT [None]
  - TACHYCARDIA [None]
